FAERS Safety Report 10034091 (Version 1)
Quarter: 2014Q1

REPORT INFORMATION
  Report Type: Spontaneous
  Country: GB (occurrence: None)
  Receive Date: 20140320
  Receipt Date: 20140320
  Transmission Date: 20141002
  Serious: Yes (Other)
  Sender: FDA-Public Use
  Company Number: AUR-APL-2014-02689

PATIENT
  Age: 48 Year
  Sex: Male

DRUGS (8)
  1. CLOPIDOGREL [Suspect]
     Indication: PRODUCT USED FOR UNKNOWN INDICATION
     Route: 048
  2. FLUOXETINE (FLUOXETINE) [Suspect]
     Indication: PRODUCT USED FOR UNKNOWN INDICATION
     Route: 048
  3. ASPIRIN (ACETYLSALICYLIC ACID) [Suspect]
     Route: 048
     Dates: start: 201304
  4. CHAMPIX (VARENICLINE TARTRATE) [Suspect]
     Indication: PRODUCT USED FOR UNKNOWN INDICATION
     Dosage: TITRATION PACK, ORAL
  5. ATORVASTATIN [Concomitant]
  6. BISOPROLOL [Concomitant]
  7. LANSOPRAZOLE [Concomitant]
  8. LOSARTAN [Concomitant]

REACTIONS (2)
  - Urinary tract infection [None]
  - Haematuria [None]
